FAERS Safety Report 9180494 (Version 1)
Quarter: 2013Q1

REPORT INFORMATION
  Report Type: Spontaneous
  Country: GB (occurrence: GB)
  Receive Date: 20130322
  Receipt Date: 20130322
  Transmission Date: 20140127
  Serious: Yes (Other)
  Sender: FDA-Public Use
  Company Number: GB-AMGEN-GBRSP2013016346

PATIENT
  Age: 15 Year
  Sex: 0

DRUGS (1)
  1. ENBREL [Suspect]
     Indication: PSORIASIS
     Dosage: 40 MG, WEEKLY
     Route: 058
     Dates: start: 20120615

REACTIONS (2)
  - Off label use [Unknown]
  - Alanine aminotransferase increased [Unknown]
